FAERS Safety Report 8606247-2 (Version None)
Quarter: 2012Q3

REPORT INFORMATION
  Report Type: 
  Country: None (occurrence: None)
  Receive Date: 20120820
  Receipt Date: 20120808
  Transmission Date: 20120928
  Serious: Yes (Hospitalization)
  Sender: FDA-Public Use
  Company Number: FR-FRI-1000037877

PATIENT
  Sex: Male

DRUGS (7)
  1. OXYBUTYNINE [Suspect]
     Dosage: 2 DF
     Route: 048
     Dates: start: 20070101
  2. ESCITALOPRAM [Suspect]
     Dosage: 10 MG
     Route: 048
     Dates: start: 20070101
  3. MODOPAR [Suspect]
     Dosage: 100MG / 25MG
     Route: 048
     Dates: start: 20070101
  4. ASPIRIN [Concomitant]
     Dosage: 1 DF
  5. EXELON [Suspect]
     Dosage: 1 DF
     Route: 050
     Dates: start: 20070101
  6. CLOZAPINE [Suspect]
     Dosage: 25 MG
     Route: 048
     Dates: start: 20070101
  7. MODOPAR [Suspect]
     Dosage: 4 DF
     Route: 048
     Dates: start: 20070101

REACTIONS (1)
  - ISCHAEMIC STROKE [None]
